FAERS Safety Report 4899102-5 (Version None)
Quarter: 2006Q1

REPORT INFORMATION
  Report Type: 
  Country: None (occurrence: None)
  Receive Date: 20060202
  Receipt Date: 20050801
  Transmission Date: 20060701
  Serious: Yes (Other)
  Sender: FDA-Public Use
  Company Number: PHEH2005US08541

PATIENT
  Age: 55 Year
  Sex: Female

DRUGS (6)
  1. ZOMETA [Suspect]
     Indication: METASTASES TO BONE
     Dosage: 4 MG, QMO
     Route: 042
     Dates: start: 20040901
  2. AVASTIN [Concomitant]
  3. ALIMTA [Concomitant]
  4. TEMODAR [Concomitant]
  5. ARANESP [Concomitant]
  6. CARBOPLATIN [Concomitant]

REACTIONS (2)
  - OSTEONECROSIS [None]
  - WOUND DEBRIDEMENT [None]
